FAERS Safety Report 5943224-4 (Version None)
Quarter: 2008Q4

REPORT INFORMATION
  Report Type: 
  Country: None (occurrence: None)
  Receive Date: 20081106
  Receipt Date: 20081031
  Transmission Date: 20090506
  Serious: Yes (Other)
  Sender: FDA-Public Use
  Company Number: B0544951A

PATIENT
  Age: 52 Year
  Sex: Male

DRUGS (8)
  1. KIVEXA [Suspect]
     Indication: HIV INFECTION
     Route: 065
     Dates: end: 20070801
  2. EPIVIR [Suspect]
     Indication: HIV INFECTION
     Route: 065
     Dates: start: 20041021
  3. ZIAGEN [Suspect]
     Indication: HIV INFECTION
     Route: 065
     Dates: start: 20041021
  4. VIRACEPT [Suspect]
     Indication: HIV INFECTION
     Route: 065
     Dates: start: 20041021, end: 20051004
  5. NORVIR [Suspect]
     Indication: HIV INFECTION
     Route: 048
     Dates: end: 20070801
  6. REYATAZ [Suspect]
     Indication: HIV INFECTION
     Route: 048
     Dates: end: 20070801
  7. PEGINTERFERON ALFA-2B [Concomitant]
     Route: 058
  8. REBETOL [Concomitant]
     Route: 048

REACTIONS (2)
  - MITOCHONDRIAL CYTOPATHY [None]
  - MYOSITIS [None]
